FAERS Safety Report 6757609-X (Version None)
Quarter: 2010Q2

REPORT INFORMATION
  Report Type: 
  Country: None (occurrence: None)
  Receive Date: 20100607
  Receipt Date: 20100527
  Transmission Date: 20101027
  Serious: Yes (Other)
  Sender: FDA-Public Use
  Company Number: US-WYE-H14373310

PATIENT
  Sex: Female
  Weight: 83.99 kg

DRUGS (6)
  1. EFFEXOR XR [Suspect]
     Route: 048
     Dates: start: 20071101, end: 20100320
  2. OMEPRAZOLE [Concomitant]
     Indication: GASTROOESOPHAGEAL REFLUX DISEASE
     Dates: start: 20070101
  3. METOPROLOL TARTRATE [Concomitant]
     Indication: HYPERTENSION
     Dates: start: 20090101
  4. LORAZEPAM [Concomitant]
     Indication: ANXIETY
     Dosage: 1 MG PRN
     Dates: start: 20080101
  5. LORAZEPAM [Concomitant]
     Indication: INSOMNIA
  6. CELEBREX [Concomitant]
     Indication: PAIN
     Dates: start: 20090101

REACTIONS (5)
  - BLOOD PRESSURE INCREASED [None]
  - DIZZINESS [None]
  - DRUG WITHDRAWAL SYNDROME [None]
  - NAUSEA [None]
  - PAIN [None]
